FAERS Safety Report 18898627 (Version 1)
Quarter: 2021Q1

REPORT INFORMATION
  Report Type: Spontaneous
  Country: US (occurrence: US)
  Receive Date: 20210214
  Receipt Date: 20210214
  Transmission Date: 20210420
  Serious: Yes (Other)
  Sender: FDA-Public Use
  Company Number: None

PATIENT
  Age: 43 Year
  Sex: Female
  Weight: 54 kg

DRUGS (3)
  1. BUPROPION XL [Suspect]
     Active Substance: BUPROPION HYDROCHLORIDE
     Indication: DEPRESSION
     Dates: start: 20210208, end: 20210214
  2. METOPROLOL. [Concomitant]
     Active Substance: METOPROLOL
  3. BUPROPION XL [Suspect]
     Active Substance: BUPROPION HYDROCHLORIDE
     Indication: ANXIETY
     Dates: start: 20210208, end: 20210214

REACTIONS (7)
  - Product substitution issue [None]
  - Feeling of despair [None]
  - Major depression [None]
  - Depressive symptom [None]
  - Crying [None]
  - Paralysis [None]
  - Suicidal ideation [None]

NARRATIVE: CASE EVENT DATE: 20210209
